FAERS Safety Report 4663972-6 (Version None)
Quarter: 2005Q2

REPORT INFORMATION
  Report Type: 
  Country: None (occurrence: None)
  Receive Date: 20050502
  Receipt Date: 20050318
  Transmission Date: 20051028
  Serious: No
  Sender: FDA-Public Use
  Company Number: 200512297US

PATIENT
  Sex: Female

DRUGS (3)
  1. KETEK [Suspect]
     Indication: COUGH
     Dosage: 800 MG QPM
     Dates: start: 20050317
  2. KETEK [Suspect]
     Indication: NASAL CONGESTION
     Dosage: 800 MG QPM
     Dates: start: 20050317
  3. KETEK [Suspect]
     Indication: PHARYNGOLARYNGEAL PAIN
     Dosage: 800 MG QPM
     Dates: start: 20050317

REACTIONS (1)
  - INSOMNIA [None]
